FAERS Safety Report 10178291 (Version 1)
Quarter: 2014Q2

REPORT INFORMATION
  Report Type: Report from Study
  Country: CZ (occurrence: CZ)
  Receive Date: 20140519
  Receipt Date: 20140519
  Transmission Date: 20141212
  Serious: Yes (Death, Life-Threatening, Hospitalization)
  Sender: FDA-Public Use
  Company Number: PHHY2014CZ058816

PATIENT
  Age: 58 Year
  Sex: Female
  Weight: 75 kg

DRUGS (31)
  1. EVEROLIMUS [Suspect]
     Indication: RENAL CELL CARCINOMA
     Dosage: 5 MG, DAILY
     Route: 048
     Dates: start: 20130321, end: 20130422
  2. EVEROLIMUS [Suspect]
     Dosage: 5 MG, DAILY
     Route: 048
     Dates: start: 20130507, end: 20130618
  3. EVEROLIMUS [Suspect]
     Dosage: 5 MG, DAILY
     Route: 048
     Dates: start: 20130711, end: 20130814
  4. EVEROLIMUS [Suspect]
     Dosage: 5 MG, DAILY
     Route: 048
     Dates: start: 20130829, end: 20130912
  5. EVEROLIMUS [Suspect]
     Dosage: 5 MG, DAILY
     Route: 048
     Dates: start: 20131004, end: 20131203
  6. ALMIRAL [Suspect]
     Indication: BACK PAIN
     Dosage: 3 ML, UNK
     Route: 030
  7. TRAMAL [Suspect]
     Indication: BACK PAIN
     Dosage: 2 ML, UNK
  8. ZODAC [Concomitant]
  9. RIVOCOR [Concomitant]
  10. LETROX [Concomitant]
  11. ZOLSANA [Concomitant]
  12. TRAZODONE HCL [Concomitant]
  13. DEGAN [Concomitant]
  14. POTASSIUM CHLORIDE [Concomitant]
  15. CALCICHEW [Concomitant]
  16. LORISTA [Concomitant]
  17. KAPIDIN [Concomitant]
  18. SORTIS [Concomitant]
  19. MEGACE [Concomitant]
  20. LACTULOSE [Concomitant]
  21. ERDOMED [Concomitant]
  22. NOVALGINE [Concomitant]
  23. ARTRILOM [Concomitant]
  24. TARGIN [Concomitant]
  25. FRAXIPARINE [Concomitant]
  26. MUCOSOLVAN [Concomitant]
  27. DURAGESIC [Concomitant]
  28. TENSIOMIN [Concomitant]
  29. PLASMALYTE [Concomitant]
  30. PERFALGAN [Concomitant]
  31. HELICID [Concomitant]

REACTIONS (32)
  - Pulmonary embolism [Fatal]
  - Back pain [Fatal]
  - Musculoskeletal chest pain [Fatal]
  - Malignant neoplasm progression [Fatal]
  - Chills [Unknown]
  - Tremor [Unknown]
  - Rhinitis [Unknown]
  - Spinal pain [Unknown]
  - Spinal osteoarthritis [Unknown]
  - Muscular weakness [Unknown]
  - Syncope [Unknown]
  - Hypotension [Unknown]
  - Impaired gastric emptying [Unknown]
  - Paraesthesia [Unknown]
  - Hypocalcaemia [Unknown]
  - Urinary tract disorder [Unknown]
  - Ataxia [Unknown]
  - Tongue dry [Unknown]
  - General physical health deterioration [Unknown]
  - Nausea [Unknown]
  - Hypokalaemia [Unknown]
  - Chest pain [Unknown]
  - Hypertriglyceridaemia [Recovered/Resolved]
  - Dyspnoea [Unknown]
  - Bronchitis [Unknown]
  - Tongue oedema [Unknown]
  - Decreased appetite [Unknown]
  - Abdominal discomfort [Unknown]
  - Inadequate analgesia [None]
  - Drug hypersensitivity [None]
  - Altered state of consciousness [None]
  - Metastatic renal cell carcinoma [None]
